FAERS Safety Report 9298727 (Version 1)
Quarter: 2013Q2

REPORT INFORMATION
  Report Type: Spontaneous
  Country: US (occurrence: US)
  Receive Date: 20130520
  Receipt Date: 20130520
  Transmission Date: 20140414
  Serious: No
  Sender: FDA-Public Use
  Company Number: US-TEVA-405114USA

PATIENT
  Age: 51 Year
  Sex: Male
  Weight: 90.8 kg

DRUGS (13)
  1. NUVIGIL [Suspect]
     Indication: FATIGUE
     Route: 048
  2. COPAXONE [Concomitant]
     Indication: MULTIPLE SCLEROSIS
  3. HYDROCODONE [Concomitant]
     Dosage: 10/325
  4. KLONOPIN [Concomitant]
     Indication: TREMOR
  5. PROZAC [Concomitant]
     Indication: DEPRESSION
  6. LITHIUM [Concomitant]
     Indication: DEPRESSION
  7. ONDANSETRON [Concomitant]
     Indication: NAUSEA
  8. OMEPRAZOLE [Concomitant]
     Indication: GASTROOESOPHAGEAL REFLUX DISEASE
  9. SUCRALFATE [Concomitant]
  10. ZANTAC [Concomitant]
     Indication: GASTROOESOPHAGEAL REFLUX DISEASE
  11. ADVAIR [Concomitant]
     Indication: DYSPNOEA
  12. VENTOLIN [Concomitant]
     Indication: DYSPNOEA
  13. BACLOFEN [Concomitant]
     Indication: MUSCLE SPASMS

REACTIONS (3)
  - Pain [Not Recovered/Not Resolved]
  - Medication error [Not Recovered/Not Resolved]
  - Off label use [Not Recovered/Not Resolved]
